FAERS Safety Report 6161495-9 (Version None)
Quarter: 2009Q2

REPORT INFORMATION
  Report Type: 
  Country: None (occurrence: None)
  Receive Date: 20090421
  Receipt Date: 20090410
  Transmission Date: 20091009
  Serious: Yes (Other)
  Sender: FDA-Public Use
  Company Number: PHHY2009JP12474

PATIENT
  Age: 43 Year
  Sex: Female

DRUGS (5)
  1. ZOMETA [Suspect]
     Indication: METASTASES TO BONE
     Dosage: UNK
     Route: 042
  2. ZOMETA [Suspect]
     Indication: METASTASES TO CENTRAL NERVOUS SYSTEM
  3. AREDIA [Suspect]
     Indication: METASTASES TO BONE
     Dosage: UNK
     Route: 042
  4. AREDIA [Suspect]
     Indication: METASTASES TO CENTRAL NERVOUS SYSTEM
  5. CHEMOTHERAPEUTICS NOS [Concomitant]

REACTIONS (10)
  - BONE DISORDER [None]
  - DENTAL PULP DISORDER [None]
  - INFECTION [None]
  - LOOSE TOOTH [None]
  - MOUTH ULCERATION [None]
  - OSTEONECROSIS [None]
  - PAIN [None]
  - PURULENT DISCHARGE [None]
  - TOOTH DEPOSIT [None]
  - TOOTH IMPACTED [None]
